FAERS Safety Report 6115578-X (Version None)
Quarter: 2009Q1

REPORT INFORMATION
  Report Type: 
  Country: None (occurrence: None)
  Receive Date: 20090313
  Receipt Date: 20090304
  Transmission Date: 20090719
  Serious: Yes (Hospitalization, Disabling, Other)
  Sender: FDA-Public Use
  Company Number: MX-JNJFOC-20090301156

PATIENT
  Age: 23 Year
  Sex: Female
  Weight: 56 kg

DRUGS (2)
  1. INVEGA [Suspect]
     Indication: DELIRIUM
     Route: 048
  2. INVEGA [Suspect]
     Indication: PSYCHOTIC DISORDER
     Route: 048

REACTIONS (7)
  - ANGIOEDEMA [None]
  - DIZZINESS [None]
  - DYSPHAGIA [None]
  - DYSTONIA [None]
  - OCULOGYRIC CRISIS [None]
  - PROTRUSION TONGUE [None]
  - RESPIRATORY DISORDER [None]
